FAERS Safety Report 7444969-X (Version None)
Quarter: 2011Q2

REPORT INFORMATION
  Report Type: 
  Country: None (occurrence: None)
  Receive Date: 20110429
  Receipt Date: 20110420
  Transmission Date: 20111010
  Serious: Yes (Other)
  Sender: FDA-Public Use
  Company Number: GB-BRISTOL-MYERS SQUIBB COMPANY-15690837

PATIENT
  Age: 44 Year
  Sex: Female

DRUGS (2)
  1. EFAVIRENZ [Suspect]
     Indication: HIV INFECTION
     Dosage: ALSO ON MAY2004,SEP2005
     Dates: start: 20040301
  2. TRUVADA [Suspect]
     Indication: HIV INFECTION
     Dates: start: 20050901

REACTIONS (2)
  - ABORTION SPONTANEOUS [None]
  - PREGNANCY [None]
